FAERS Safety Report 9399325 (Version 1)
Quarter: 2013Q3

REPORT INFORMATION
  Report Type: Spontaneous
  Country: US (occurrence: None)
  Receive Date: 20130709
  Receipt Date: 20130709
  Transmission Date: 20140515
  Serious: Yes (Other)
  Sender: FDA-Public Use
  Company Number: DSU-2013-03866

PATIENT
  Age: 71 Year
  Sex: Female
  Weight: 90.72 kg

DRUGS (4)
  1. BENICAR [Suspect]
     Indication: HYPERTENSION
     Dosage: 10 MG (20 MG,QD),PER ORAL
     Route: 048
     Dates: start: 2013, end: 2013
  2. FUROSEMIDE [Concomitant]
  3. POTASSIUM (POTASSIUM) (POTASSIUM) [Concomitant]
  4. LEVOTHYROXINE (LEVOTHYROXINE (LEVOTHYROXINE) [Concomitant]

REACTIONS (7)
  - Oedema mouth [None]
  - Throat tightness [None]
  - Headache [None]
  - Epistaxis [None]
  - Weight increased [None]
  - Vision blurred [None]
  - Flank pain [None]
